FAERS Safety Report 15649491 (Version 3)
Quarter: 2019Q1

REPORT INFORMATION
  Report Type: Spontaneous
  Country: US (occurrence: US)
  Receive Date: 20181122
  Receipt Date: 20190205
  Transmission Date: 20190417
  Serious: No
  Sender: FDA-Public Use
  Company Number: US-009507513-1811USA004476

PATIENT
  Age: 22 Year
  Sex: Female
  Weight: 56.24 kg

DRUGS (1)
  1. NEXPLANON [Suspect]
     Active Substance: ETONOGESTREL
     Dosage: 1 IMPLANT, LEFT ARM (INFERIOR TO THE SULCUS BICIPITALIS MEDIALIS)
     Route: 059
     Dates: start: 20181030

REACTIONS (1)
  - Device breakage [Not Recovered/Not Resolved]

NARRATIVE: CASE EVENT DATE: 20181108
